FAERS Safety Report 23499036 (Version 1)
Quarter: 2024Q1

REPORT INFORMATION
  Report Type: Spontaneous
  Country: CN (occurrence: CN)
  Receive Date: 20240208
  Receipt Date: 20240208
  Transmission Date: 20240409
  Serious: Yes (Other)
  Sender: FDA-Public Use
  Company Number: CN-SHANGHAI JUNSHI BIOSCIENCES CO., LTD.-CN2024009256

PATIENT

DRUGS (5)
  1. TORIPALIMAB [Suspect]
     Active Substance: TORIPALIMAB
     Indication: Malignant melanoma stage IV
     Dosage: 240 MG, Q2W
     Route: 041
     Dates: start: 20210122, end: 20210122
  2. TORIPALIMAB [Suspect]
     Active Substance: TORIPALIMAB
     Dosage: 240 MG, Q2W
     Route: 041
     Dates: start: 20210521
  3. AXITINIB [Concomitant]
     Active Substance: AXITINIB
     Indication: Malignant melanoma stage IV
     Dosage: 5 MG, BID
     Dates: start: 20210122, end: 20210122
  4. AXITINIB [Concomitant]
     Active Substance: AXITINIB
     Dosage: 5 MG, BID
     Dates: start: 20210521
  5. ZOLEDRONIC ACID [Concomitant]
     Active Substance: ZOLEDRONIC ACID
     Indication: Symptomatic treatment
     Dosage: UNK

REACTIONS (2)
  - Drug-induced liver injury [Recovering/Resolving]
  - Diabetic ketoacidosis [Unknown]

NARRATIVE: CASE EVENT DATE: 20210122
